FAERS Safety Report 10057842 (Version 1)
Quarter: 2014Q1

REPORT INFORMATION
  Report Type: Spontaneous
  Country: US (occurrence: None)
  Receive Date: 20140313
  Receipt Date: 20140313
  Transmission Date: 20141002
  Serious: Yes (Other)
  Sender: FDA-Public Use
  Company Number: US-145525

PATIENT
  Age: 24 Year
  Sex: Male
  Weight: 76.66 kg

DRUGS (2)
  1. BOTULISM ANTITOXIN [Suspect]
     Indication: BOTULISM
     Dates: start: 20140228, end: 20140228
  2. PRIVIGEN [Concomitant]

REACTIONS (13)
  - Nausea [None]
  - Abdominal pain [None]
  - Diplopia [None]
  - Dizziness [None]
  - Eyelid ptosis [None]
  - Dysphagia [None]
  - Asthenia [None]
  - Fatigue [None]
  - Paraesthesia [None]
  - Areflexia [None]
  - Ophthalmoplegia [None]
  - Muscular weakness [None]
  - Tachycardia [None]
